FAERS Safety Report 5411552-7 (Version None)
Quarter: 2007Q3

REPORT INFORMATION
  Report Type: 
  Country: None (occurrence: None)
  Receive Date: 20070810
  Receipt Date: 20070731
  Transmission Date: 20080115
  Serious: Yes (Hospitalization, Other)
  Sender: FDA-Public Use
  Company Number: JP-PFIZER INC-2007051724

PATIENT
  Sex: Female
  Weight: 70 kg

DRUGS (6)
  1. SOLU-MEDROL [Suspect]
     Indication: SUDDEN HEARING LOSS
     Route: 042
  2. DEPAS [Concomitant]
     Route: 048
  3. GLYCEOL [Concomitant]
     Route: 042
  4. ALL OTHER THERAPEUTIC PRODUCTS [Concomitant]
  5. FAMOTIDINE [Concomitant]
     Dates: start: 20051219
  6. ADETPHOS [Concomitant]

REACTIONS (2)
  - MANIA [None]
  - PSYCHOTIC DISORDER [None]
